FAERS Safety Report 8925416 (Version 2)
Quarter: 2012Q4

REPORT INFORMATION
  Report Type: 
  Country: JP (occurrence: JP)
  Receive Date: 20121126
  Receipt Date: 20121220
  Transmission Date: 20130627
  Serious: Yes (Disabling)
  Sender: FDA-Public Use
  Company Number: JP-ROCHE-1157040

PATIENT
  Age: 58 Year
  Sex: Male
  Weight: 61 kg

DRUGS (3)
  1. AVASTIN [Suspect]
     Indication: COLON CANCER METASTATIC
     Route: 041
     Dates: start: 20120510, end: 20120910
  2. ELPLAT [Suspect]
     Indication: COLON CANCER METASTATIC
     Dosage: Dosage is uncertain.
     Route: 041
     Dates: start: 20120411
  3. TS-1 [Concomitant]
     Indication: COLON CANCER METASTATIC
     Route: 048
     Dates: start: 20120410, end: 20120910

REACTIONS (3)
  - Cerebral infarction [Recovered/Resolved with Sequelae]
  - Neuropathy peripheral [Unknown]
  - Hypoaesthesia [Unknown]
